FAERS Safety Report 5140657-3 (Version None)
Quarter: 2006Q4

REPORT INFORMATION
  Report Type: 
  Country: None (occurrence: None)
  Receive Date: 20061031
  Receipt Date: 20050503
  Transmission Date: 20070319
  Serious: Yes (Hospitalization)
  Sender: FDA-Public Use
  Company Number: NL-BOEHRINGER INGELHEIM PHARMACEUTICALS, INC.-2005-NL-00108NL

PATIENT
  Sex: Male

DRUGS (11)
  1. SPIRIVA [Suspect]
     Route: 055
     Dates: start: 20050202
  2. PARIET [Suspect]
     Route: 048
     Dates: start: 20010626
  3. ASPIRIN [Suspect]
     Route: 048
     Dates: start: 20001211
  4. CARDURA [Suspect]
     Route: 048
     Dates: start: 20020920
  5. BUMETANIDUM [Suspect]
     Route: 048
     Dates: start: 20030924
  6. DILANORM [Suspect]
     Route: 048
     Dates: start: 20020417
  7. COZAAR [Suspect]
     Route: 048
     Dates: start: 20001211
  8. PRAVASTATIN [Suspect]
     Route: 048
     Dates: start: 20030912
  9. DICLOFENAC [Suspect]
     Route: 048
     Dates: start: 20040401
  10. ALLOPURINOL [Suspect]
     Route: 048
     Dates: start: 20001211
  11. TEMAZEPAM [Suspect]
     Route: 048
     Dates: start: 20030411

REACTIONS (1)
  - GYNAECOMASTIA [None]
